FAERS Safety Report 7834633-7 (Version None)
Quarter: 2011Q4

REPORT INFORMATION
  Report Type: 
  Country: None (occurrence: None)
  Receive Date: 20111024
  Receipt Date: 20110907
  Transmission Date: 20120403
  Serious: Yes (Disabling, Other)
  Sender: FDA-Public Use
  Company Number: US-BAUSCH-2011BL005314

PATIENT
  Age: 75 Year
  Sex: Female

DRUGS (7)
  1. NEOMYCIN AND POLYMYXIN B SULFATES AND HYDROCORTISONE [Suspect]
     Indication: PRURITUS
     Route: 001
     Dates: start: 20110714, end: 20110716
  2. NEOMYCIN AND POLYMYXIN B SULFATES AND HYDROCORTISONE [Suspect]
     Route: 001
     Dates: start: 20110717, end: 20110723
  3. KLONOPIN [Concomitant]
     Indication: EAR PAIN
     Route: 048
  4. NAPROSYN [Concomitant]
     Indication: EAR PAIN
     Route: 048
  5. NEOMYCIN AND POLYMYXIN B SULFATES AND HYDROCORTISONE [Suspect]
     Route: 001
     Dates: start: 20110717, end: 20110723
  6. SYNALAR [Concomitant]
     Indication: PRURITUS
     Route: 001
  7. NEOMYCIN AND POLYMYXIN B SULFATES AND HYDROCORTISONE [Suspect]
     Indication: EAR PAIN
     Route: 001
     Dates: start: 20110714, end: 20110716

REACTIONS (2)
  - EAR DISCOMFORT [None]
  - HYPOACUSIS [None]
